FAERS Safety Report 7202319-8 (Version None)
Quarter: 2010Q4

REPORT INFORMATION
  Report Type: 
  Country: None (occurrence: None)
  Receive Date: 20101215
  Receipt Date: 20101201
  Transmission Date: 20110411
  Serious: Yes (Death)
  Sender: FDA-Public Use
  Company Number: 2010005215

PATIENT
  Age: 85 Year
  Sex: Female

DRUGS (1)
  1. TARCEVA [Suspect]
     Indication: LUNG NEOPLASM MALIGNANT
     Dosage: (50 MG,QD),ORAL
     Route: 048
     Dates: start: 20090427

REACTIONS (1)
  - ACUTE MYELOID LEUKAEMIA [None]
